FAERS Safety Report 16337272 (Version 1)
Quarter: 2019Q2

REPORT INFORMATION
  Report Type: Spontaneous
  Country: JP (occurrence: JP)
  Receive Date: 20190521
  Receipt Date: 20190521
  Transmission Date: 20190711
  Serious: Yes (Hospitalization)
  Sender: FDA-Public Use
  Company Number: JP-SA-2019SA137813

PATIENT
  Age: 70 Year
  Sex: Male

DRUGS (5)
  1. CYRAMZA [Concomitant]
     Active Substance: RAMUCIRUMAB
  2. PACLITAXEL. [Concomitant]
     Active Substance: PACLITAXEL
  3. GIMERACIL;OTERACIL POTASSIUM;TEGAFUR [Concomitant]
     Active Substance: GIMERACIL\OTERACIL\TEGAFUR
     Route: 048
  4. OPDIVO [Concomitant]
     Active Substance: NIVOLUMAB
  5. ELPLAT [Suspect]
     Active Substance: OXALIPLATIN
     Indication: GASTRIC CANCER
     Dosage: UNK UNK, QD
     Route: 041

REACTIONS (1)
  - Oesophageal varices haemorrhage [Recovered/Resolved]
